FAERS Safety Report 22217619 (Version 2)
Quarter: 2023Q2

REPORT INFORMATION
  Report Type: Other
  Country: US (occurrence: None)
  Receive Date: 20230417
  Receipt Date: 20230420
  Transmission Date: 20230722
  Serious: Yes (Death)
  Sender: FDA-Public Use
  Company Number: US-ROCHE-3332095

PATIENT
  Age: 69 Year
  Sex: Male
  Weight: 91 kg

DRUGS (19)
  1. XOLAIR [Suspect]
     Active Substance: OMALIZUMAB
     Indication: Asthma
     Dosage: INJECT 375 MG SUBCUTANEOUSLY EVERY 14 DAY, INJECT 150 MG, 150 MG/ML
     Route: 058
  2. XOLAIR [Suspect]
     Active Substance: OMALIZUMAB
  3. XOLAIR [Suspect]
     Active Substance: OMALIZUMAB
  4. XOLAIR [Suspect]
     Active Substance: OMALIZUMAB
     Indication: Emphysema
     Dosage: INJECT 375 MG SUBCUTANEOUSLY EVERY 14 DAY, INJECT 150 MG 75 MG/0.5 ML
     Route: 058
  5. XOLAIR [Suspect]
     Active Substance: OMALIZUMAB
  6. XOLAIR [Suspect]
     Active Substance: OMALIZUMAB
  7. PREDNISONE [Concomitant]
     Active Substance: PREDNISONE
     Dosage: 5 TABLETS (5 DAYS), 4 TABS (4 DAYS), 3 TAB (3 DAYS), 2 TAB (2 DAYS), 1 TAB (2 DAYS)
     Route: 048
  8. VENTOLIN HFA [Concomitant]
     Active Substance: ALBUTEROL SULFATE
     Dosage: ACTUATION INHALER, 90 MCG, INHALE 2 PUFFS , EVERY 6 HOURS AS NEEDED
  9. LIPITOR [Concomitant]
     Active Substance: ATORVASTATIN CALCIUM
     Dosage: EXPIRED
     Route: 049
  10. ZITHROMAX [Concomitant]
     Active Substance: AZITHROMYCIN DIHYDRATE
     Route: 048
  11. TRELEGY ELLIPTA [Concomitant]
     Active Substance: FLUTICASONE FUROATE\UMECLIDINIUM BROMIDE\VILANTEROL TRIFENATATE
     Dosage: 200-62.5-25 MCG, INHALE 1 INHALATION INTO THE LUNGS
  12. NEURONTIN [Concomitant]
     Active Substance: GABAPENTIN
     Route: 048
  13. PRINIVIL [Concomitant]
     Active Substance: LISINOPRIL
     Route: 048
  14. ZESTRIL [Concomitant]
     Active Substance: LISINOPRIL
     Route: 048
  15. SINGULAIR [Concomitant]
     Active Substance: MONTELUKAST SODIUM
     Route: 048
  16. SINGULAIR [Concomitant]
     Active Substance: MONTELUKAST SODIUM
     Dosage: NIGHTLY
     Route: 048
  17. MS CONTIN [Concomitant]
     Active Substance: MORPHINE SULFATE
     Route: 048
  18. MORPHINE SULFATE [Concomitant]
     Active Substance: MORPHINE SULFATE
     Route: 048
  19. NARCAN [Concomitant]
     Active Substance: NALOXONE HYDROCHLORIDE
     Dosage: 4 MG/ ACTUATION SPRAY, INSTILL 1 SPRAY IN 1 NOSTRIL IF NEEDED FOR OPIOD OVERDOSE

REACTIONS (2)
  - Death [Fatal]
  - Off label use [Unknown]
